FAERS Safety Report 7820455-X (Version None)
Quarter: 2011Q4

REPORT INFORMATION
  Report Type: 
  Country: None (occurrence: None)
  Receive Date: 20111012
  Receipt Date: 20111005
  Transmission Date: 20120403
  Serious: Yes (Death)
  Sender: FDA-Public Use
  Company Number: DSA_47357_2011

PATIENT
  Sex: Male

DRUGS (6)
  1. ABILIFY [Concomitant]
  2. MULTI-VITAMINS [Concomitant]
  3. XENAZINE [Suspect]
     Indication: DYSKINESIA
     Dosage: 25 MG BID ORAL
     Route: 048
     Dates: start: 20101006, end: 20110806
  4. XENAZINE [Suspect]
     Indication: TORTICOLLIS
     Dosage: 25 MG BID ORAL
     Route: 048
     Dates: start: 20101006, end: 20110806
  5. ATIVAN [Concomitant]
  6. COGENTIN [Concomitant]

REACTIONS (6)
  - DECREASED APPETITE [None]
  - DEAFNESS NEUROSENSORY [None]
  - IMPATIENCE [None]
  - INFLUENZA LIKE ILLNESS [None]
  - DYSSTASIA [None]
  - DYSURIA [None]
